FAERS Safety Report 6763083-X (Version None)
Quarter: 2010Q2

REPORT INFORMATION
  Report Type: 
  Country: None (occurrence: None)
  Receive Date: 20100609
  Receipt Date: 20100529
  Transmission Date: 20101027
  Serious: Yes (Other)
  Sender: FDA-Public Use
  Company Number: US-PFIZER INC-2010067983

PATIENT
  Sex: Female
  Weight: 92 kg

DRUGS (10)
  1. CHANTIX [Suspect]
     Indication: SMOKING CESSATION THERAPY
     Dosage: 0.5 MG, 1X/DAY
     Route: 048
     Dates: start: 20100524
  2. SERTRALINE HCL [Suspect]
     Indication: DEPRESSION
     Dosage: 100 MG, 1X/DAY
     Route: 048
  3. SERTRALINE HCL [Suspect]
     Dosage: 50 MG, ALTERNATE DAY
     Route: 048
  4. SERTRALINE HCL [Suspect]
     Dosage: 50 MG, 1X/DAY
     Route: 048
  5. RISPERDAL [Concomitant]
     Indication: SCHIZOPHRENIA
     Dosage: 6 MG, 1X/DAY
     Route: 048
  6. LEVOTHYROXINE [Concomitant]
     Indication: HYPOTHYROIDISM
     Dosage: 0.088 MG, 1X/DAY
     Route: 048
  7. PEGASYS [Concomitant]
     Indication: HEPATITIS C
     Dosage: UNK
  8. RIBAVIRIN [Concomitant]
     Indication: HEPATITIS C
     Dosage: 1000 MG, 1X/DAY
  9. MELATONIN [Concomitant]
     Indication: SLEEP DISORDER
     Dosage: 3 MG, 1X/DAY
     Route: 048
  10. AMBIEN [Concomitant]
     Indication: SLEEP DISORDER
     Dosage: 10 MG, AS NEEDED
     Route: 048

REACTIONS (7)
  - AGITATION [None]
  - FATIGUE [None]
  - RESTLESSNESS [None]
  - SELF-INJURIOUS IDEATION [None]
  - THINKING ABNORMAL [None]
  - VIOLENCE-RELATED SYMPTOM [None]
  - WEIGHT INCREASED [None]
